FAERS Safety Report 9026799 (Version 1)
Quarter: 2013Q1

REPORT INFORMATION
  Report Type: Spontaneous
  Country: FR (occurrence: None)
  Receive Date: 20130109
  Receipt Date: 20130109
  Transmission Date: 20140127
  Serious: Yes (Hospitalization)
  Sender: FDA-Public Use
  Company Number: 2011281484

PATIENT
  Age: 66 Year
  Sex: Male
  Weight: 69 kg

DRUGS (7)
  1. GEMTUZUMAB OZOGAMICIN [Suspect]
     Indication: ACUTE MYELOID LEUKAEMIA
     Dates: start: 20090221, end: 20090227
  2. ARACYTINE [Suspect]
     Indication: ACUTE MYELOID LEUKAEMIA
     Dates: start: 20090221, end: 20090227
  3. CERUBIDINE [Suspect]
     Dates: start: 20090221, end: 20090223
  4. CORDARONE (AMIODARONE HYDROCHLORIDE) [Concomitant]
  5. LOXEN (NICARDIPINE HYDROCHLORIDE) SLOW RELEASE [Concomitant]
  6. MOPRAL (OMEPRAZOLE) [Concomitant]
  7. VANCOMYCIN (VANCOMYCIN) [Concomitant]

REACTIONS (7)
  - Hyperthermia [None]
  - Streptococcus test positive [None]
  - Bacterial test positive [None]
  - Staphylococcus test positive [None]
  - Enterococcus test positive [None]
  - Streptococcal sepsis [None]
  - Disease progression [None]
